FAERS Safety Report 5402793-3 (Version None)
Quarter: 2007Q3

REPORT INFORMATION
  Report Type: 
  Country: None (occurrence: None)
  Receive Date: 20070730
  Receipt Date: 20070730
  Transmission Date: 20080115
  Serious: No
  Sender: FDA-Public Use
  Company Number: None

PATIENT
  Age: 42 Year
  Sex: Female
  Weight: 81.6475 kg

DRUGS (1)
  1. SYNTHROID [Suspect]
     Indication: HYPOTHYROIDISM
     Dosage: ONE TABLET PER DAY PO
     Route: 048
     Dates: start: 19970501, end: 20070729

REACTIONS (1)
  - PHARMACEUTICAL PRODUCT COMPLAINT [None]
